FAERS Safety Report 17451770 (Version 1)
Quarter: 2020Q1

REPORT INFORMATION
  Report Type: Spontaneous
  Country: US (occurrence: US)
  Receive Date: 20200224
  Receipt Date: 20200224
  Transmission Date: 20200409
  Serious: No
  Sender: FDA-Public Use
  Company Number: None

PATIENT
  Age: 67 Year
  Sex: Male
  Weight: 121.5 kg

DRUGS (9)
  1. BUMEX [Concomitant]
     Active Substance: BUMETANIDE
  2. HUMALOG [Concomitant]
     Active Substance: INSULIN LISPRO
  3. REPATHA [Suspect]
     Active Substance: EVOLOCUMAB
     Indication: BLOOD CHOLESTEROL INCREASED
     Dosage: ?          QUANTITY:140 INJECTION(S);OTHER FREQUENCY:EVERY 2 WEEKS;??
     Route: 058
     Dates: start: 20200123, end: 20200224
  4. ENTRESTO [Concomitant]
     Active Substance: SACUBITRIL\VALSARTAN
  5. ELIQUIS [Concomitant]
     Active Substance: APIXABAN
  6. VICTOZA [Concomitant]
     Active Substance: LIRAGLUTIDE
  7. METOPROLOL. [Concomitant]
     Active Substance: METOPROLOL
  8. PLAVIX [Concomitant]
     Active Substance: CLOPIDOGREL BISULFATE
  9. TRESIBA [Concomitant]
     Active Substance: INSULIN DEGLUDEC

REACTIONS (8)
  - Pharyngeal swelling [None]
  - Dizziness [None]
  - Pyrexia [None]
  - Oropharyngeal pain [None]
  - Chills [None]
  - Back pain [None]
  - Dyspnoea [None]
  - Pain [None]

NARRATIVE: CASE EVENT DATE: 20200209
